FAERS Safety Report 20863172 (Version 1)
Quarter: 2022Q2

REPORT INFORMATION
  Report Type: Spontaneous
  Country: FR (occurrence: FR)
  Receive Date: 20220523
  Receipt Date: 20220523
  Transmission Date: 20220721
  Serious: Yes (Death)
  Sender: FDA-Public Use
  Company Number: None

PATIENT
  Age: 42 Year
  Sex: Male

DRUGS (8)
  1. PREGABALIN [Suspect]
     Active Substance: PREGABALIN
     Indication: Product used for unknown indication
     Dosage: UNKNOWN , THERAPY START DATE : ASKU
     Route: 065
     Dates: end: 202009
  2. SERTRALINE [Suspect]
     Active Substance: SERTRALINE HYDROCHLORIDE
     Indication: Product used for unknown indication
     Dosage: UNKNOWN, SERTRALINE BASE , THERAPY START DATE : ASKU
     Route: 065
     Dates: end: 202009
  3. LEVOMEPROMAZINE [Suspect]
     Active Substance: LEVOMEPROMAZINE
     Indication: Product used for unknown indication
     Dosage: UNKNOWN , THERAPY START DATE : ASKU
     Route: 065
     Dates: end: 202009
  4. TRIMEPRAZINE [Suspect]
     Active Substance: TRIMEPRAZINE
     Indication: Product used for unknown indication
     Dosage: UNKNOWN , THERAPY START DATE : ASKU
     Route: 065
     Dates: end: 202009
  5. METHADONE [Suspect]
     Active Substance: METHADONE HYDROCHLORIDE
     Indication: Product substitution
     Dosage: UNKNOWN , THERAPY START DATE : ASKU
     Route: 065
     Dates: end: 202009
  6. CANNABIS SATIVA SUBSP. INDICA TOP [Suspect]
     Active Substance: CANNABIS SATIVA SUBSP. INDICA TOP
     Dosage: UNKNOWN , THERAPY START DATE : ASKU
     Route: 065
     Dates: end: 202009
  7. LOXAPINE [Suspect]
     Active Substance: LOXAPINE
     Indication: Product used for unknown indication
     Dosage: UNKNOWN , THERAPY START DATE : ASKU , LOXAPINE BASE
     Route: 065
     Dates: end: 202009
  8. OXAZEPAM [Suspect]
     Active Substance: OXAZEPAM
     Indication: Product used for unknown indication
     Dosage: UNKNOWN , THERAPY START DATE : ASKU
     Route: 065
     Dates: end: 202009

REACTIONS (1)
  - Drug abuse [Fatal]
